FAERS Safety Report 11204269 (Version 4)
Quarter: 2015Q3

REPORT INFORMATION
  Report Type: Spontaneous
  Country: AU (occurrence: AU)
  Receive Date: 20150620
  Receipt Date: 20150916
  Transmission Date: 20151125
  Serious: Yes (Congenital Anomaly, Other)
  Sender: FDA-Public Use
  Company Number: AU-009507513-1506AUS009356

PATIENT

DRUGS (1)
  1. IMPLANON [Suspect]
     Active Substance: ETONOGESTREL
     Dosage: 1 DF, UNK, STAT
     Route: 064
     Dates: start: 20150211

REACTIONS (5)
  - Neural tube defect [Unknown]
  - Foetal exposure during pregnancy [Recovered/Resolved]
  - Arnold-Chiari malformation [Unknown]
  - Foetal disorder [Unknown]
  - Spinal deformity [Unknown]

NARRATIVE: CASE EVENT DATE: 20150527
